FAERS Safety Report 4558382-6 (Version None)
Quarter: 2005Q1

REPORT INFORMATION
  Report Type: 
  Country: None (occurrence: None)
  Receive Date: 20050121
  Receipt Date: 20041117
  Transmission Date: 20050727
  Serious: Yes (Disabling, Other)
  Sender: FDA-Public Use
  Company Number: US-MERCK-0411USA02967

PATIENT
  Age: 61 Year
  Sex: Male
  Weight: 100 kg

DRUGS (14)
  1. ZOCOR [Suspect]
     Indication: CORONARY ARTERY ATHEROSCLEROSIS
     Route: 048
     Dates: start: 19991001, end: 20041001
  2. PROTONIX [Concomitant]
     Route: 065
  3. ALTACE [Concomitant]
     Route: 065
  4. GLUCOPHAGE [Concomitant]
     Route: 065
  5. ACTOS [Concomitant]
     Route: 065
  6. COUMADIN [Concomitant]
     Route: 065
  7. ASPIRIN [Concomitant]
     Route: 065
  8. PLAVIX [Concomitant]
     Route: 065
  9. ULTRAM [Concomitant]
     Route: 065
  10. DIOVAN [Concomitant]
     Route: 065
  11. COREG [Concomitant]
     Route: 065
  12. POTASSIUM (UNSPECIFIED) [Concomitant]
     Route: 065
  13. DYAZIDE [Concomitant]
     Route: 065
  14. DEMADEX [Concomitant]
     Route: 065

REACTIONS (3)
  - BASEDOW'S DISEASE [None]
  - CORONARY ARTERY DISEASE [None]
  - RED BLOOD CELL SEDIMENTATION RATE INCREASED [None]
